FAERS Safety Report 16890051 (Version 3)
Quarter: 2019Q4

REPORT INFORMATION
  Report Type: Spontaneous
  Country: CL (occurrence: CL)
  Receive Date: 20191007
  Receipt Date: 20191230
  Transmission Date: 20200122
  Serious: Yes (Death, Life-Threatening, Hospitalization, Other)
  Sender: FDA-Public Use
  Company Number: CL-AMGEN-CHLSP2019163073

PATIENT
  Age: 62 Year
  Sex: Female

DRUGS (2)
  1. VECTIBIX [Suspect]
     Active Substance: PANITUMUMAB
     Indication: COLORECTAL CANCER METASTATIC
     Dosage: 390 MILLIGRAM, CYCLICAL
     Route: 042
     Dates: start: 20181203, end: 201907
  2. VECTIBIX [Suspect]
     Active Substance: PANITUMUMAB
     Dosage: 390 MILLIGRAM, CYCLICAL
     Route: 042
     Dates: start: 2019, end: 20191201

REACTIONS (6)
  - Death [Fatal]
  - Hypokalaemia [Recovered/Resolved]
  - Decreased immune responsiveness [Not Recovered/Not Resolved]
  - Gastrointestinal infection [Not Recovered/Not Resolved]
  - Product prescribing error [Unknown]
  - Colorectal cancer metastatic [Unknown]

NARRATIVE: CASE EVENT DATE: 2019
